FAERS Safety Report 5331455-6 (Version None)
Quarter: 2007Q1

REPORT INFORMATION
  Report Type: 
  Country: None (occurrence: None)
  Receive Date: 20070306
  Receipt Date: 20051206
  Transmission Date: 20070707
  Serious: Yes (Hospitalization)
  Sender: FDA-Public Use
  Company Number: A03200504098

PATIENT
  Age: 55 Year
  Sex: Female
  Weight: 61.68 kg

DRUGS (9)
  1. PLAVIX [Suspect]
     Indication: STENT PLACEMENT
     Dosage: 75 MG QD - ORAL
     Route: 048
     Dates: start: 20050920, end: 20050901
  2. PLAVIX [Suspect]
     Indication: STENT PLACEMENT
     Dosage: 75 MG QD - ORAL
     Route: 048
     Dates: start: 20050101
  3. ASPIRIN [Suspect]
     Indication: STENT PLACEMENT
     Dosage: 325 MG QD - ORAL
     Route: 048
     Dates: start: 20050920, end: 20050901
  4. ASPIRIN [Suspect]
     Indication: STENT PLACEMENT
     Dosage: 325 MG QD - ORAL
     Route: 048
     Dates: start: 20051001
  5. SIMVASTATIN [Concomitant]
  6. METOPROLOL SUCCINATE [Concomitant]
  7. QUINAPRIL HCL [Concomitant]
  8. PANTOPRAZOLE SODIUM [Concomitant]
  9. DIGOXIN [Concomitant]

REACTIONS (2)
  - CARDIAC FAILURE CONGESTIVE [None]
  - MELAENA [None]
